FAERS Safety Report 12377407 (Version 1)
Quarter: 2016Q2

REPORT INFORMATION
  Report Type: Spontaneous
  Country: US (occurrence: US)
  Receive Date: 20160517
  Receipt Date: 20160517
  Transmission Date: 20160815
  Serious: Yes (Other)
  Sender: FDA-Public Use
  Company Number: US-PFIZER INC-2016257255

PATIENT
  Age: 7 Decade
  Sex: Female

DRUGS (2)
  1. LYRICA [Suspect]
     Active Substance: PREGABALIN
     Dosage: 75 MG, 2X/DAY
  2. LYRICA [Suspect]
     Active Substance: PREGABALIN
     Dosage: 75 AM AND 150 PM

REACTIONS (4)
  - Blister [Unknown]
  - Stevens-Johnson syndrome [Unknown]
  - Hypersensitivity [Unknown]
  - Skin exfoliation [Unknown]
